FAERS Safety Report 5826370-5 (Version None)
Quarter: 2008Q3

REPORT INFORMATION
  Report Type: 
  Country: None (occurrence: None)
  Receive Date: 20080729
  Receipt Date: 20080705
  Transmission Date: 20090109
  Serious: No
  Sender: FDA-Public Use
  Company Number: US-BOEHRINGER INGELHEIM GMBH, GERMANY-2008-BP-10840PF

PATIENT
  Sex: Female
  Weight: 47 kg

DRUGS (7)
  1. SPIRIVA [Suspect]
     Indication: ASTHMA
  2. CHANTIX [Suspect]
     Indication: SMOKING CESSATION THERAPY
     Dates: start: 20070601
  3. LITHIUM [Concomitant]
  4. ATIVAN [Concomitant]
  5. INDERAL [Concomitant]
  6. NEXIUM [Concomitant]
  7. LORATADINE [Concomitant]
     Indication: HYPERSENSITIVITY

REACTIONS (7)
  - ASTHENIA [None]
  - DRUG INEFFECTIVE [None]
  - DRUG INTERACTION [None]
  - EMOTIONAL DISORDER [None]
  - IRRITABILITY [None]
  - MOOD ALTERED [None]
  - MUSCULAR WEAKNESS [None]
